FAERS Safety Report 10558876 (Version 2)
Quarter: 2014Q4

REPORT INFORMATION
  Report Type: Spontaneous
  Country: FR (occurrence: FR)
  Receive Date: 20141031
  Receipt Date: 20141106
  Transmission Date: 20150529
  Serious: Yes (Hospitalization)
  Sender: FDA-Public Use
  Company Number: FR-ASTRAZENECA-2014SE81339

PATIENT
  Age: 24574 Day
  Sex: Male

DRUGS (9)
  1. INEXIUM [Suspect]
     Active Substance: ESOMEPRAZOLE
     Route: 048
     Dates: start: 20140902, end: 20140905
  2. PARACETAMOL [Concomitant]
     Active Substance: ACETAMINOPHEN
  3. CORTICOSTEROIDS [Concomitant]
     Active Substance: CORTICOSTEROID NOS
  4. VINCRISTINE [Concomitant]
     Active Substance: VINCRISTINE
     Indication: LYMPHOMA
  5. OLMESARTAN [Concomitant]
     Active Substance: OLMESARTAN
  6. ALPRAZOLAM. [Concomitant]
     Active Substance: ALPRAZOLAM
  7. METHOTREXATE (METHOTREXATE SODIUM) [Interacting]
     Active Substance: METHOTREXATE SODIUM
     Indication: B-CELL LYMPHOMA
     Dosage: 6850 MG IN ONE CYCLE
     Route: 041
     Dates: start: 20140828
  8. EUPANTOL [Interacting]
     Active Substance: PANTOPRAZOLE SODIUM
     Route: 041
     Dates: start: 20140828, end: 20140901
  9. AMLODIPINE [Concomitant]
     Active Substance: AMLODIPINE BESYLATE

REACTIONS (2)
  - Drug level fluctuating [Recovered/Resolved]
  - Drug interaction [Unknown]

NARRATIVE: CASE EVENT DATE: 20140901
